FAERS Safety Report 8114317-0 (Version None)
Quarter: 2012Q1

REPORT INFORMATION
  Report Type: 
  Country: None (occurrence: None)
  Receive Date: 20120206
  Receipt Date: 20120127
  Transmission Date: 20120608
  Serious: Yes (Hospitalization)
  Sender: FDA-Public Use
  Company Number: US-BIOGENIDEC-2011BI006971

PATIENT
  Sex: Male

DRUGS (3)
  1. VITAMINS (NOS) [Concomitant]
     Indication: MULTIPLE SCLEROSIS
  2. DEPRESSION MEDICATION (NOS) [Concomitant]
  3. TYSABRI [Suspect]
     Indication: MULTIPLE SCLEROSIS
     Route: 042
     Dates: start: 20101230

REACTIONS (8)
  - BALANCE DISORDER [None]
  - SUICIDE ATTEMPT [None]
  - BONE PAIN [None]
  - HYPOAESTHESIA [None]
  - DEPRESSION [None]
  - PAIN [None]
  - ABDOMINAL PAIN UPPER [None]
  - ASTHENIA [None]
